FAERS Safety Report 24278988 (Version 1)
Quarter: 2024Q3

REPORT INFORMATION
  Report Type: Spontaneous
  Country: JP (occurrence: JP)
  Receive Date: 20240903
  Receipt Date: 20240903
  Transmission Date: 20241017
  Serious: Yes (Other)
  Sender: PFIZER
  Company Number: JP-PFIZER INC-202400245930

PATIENT
  Age: 8 Decade
  Sex: Male

DRUGS (1)
  1. DIFLUCAN [Suspect]
     Active Substance: FLUCONAZOLE
     Indication: Systemic candida
     Dosage: UNK
     Route: 048

REACTIONS (2)
  - Endophthalmitis [Unknown]
  - Hepatic enzyme increased [Unknown]
